FAERS Safety Report 5118988-2 (Version None)
Quarter: 2006Q3

REPORT INFORMATION
  Report Type: 
  Country: None (occurrence: None)
  Receive Date: 20060927
  Receipt Date: 20060912
  Transmission Date: 20061208
  Serious: Yes (Other)
  Sender: FDA-Public Use
  Company Number: A-CH2006-12970

PATIENT
  Age: 44 Year
  Sex: Female

DRUGS (4)
  1. TRACLEER [Suspect]
     Indication: SKIN ULCER
     Dosage: SEE IMAGE
     Route: 048
     Dates: start: 20051203, end: 20060202
  2. TRACLEER [Suspect]
     Indication: SKIN ULCER
     Dosage: SEE IMAGE
     Route: 048
     Dates: start: 20060629
  3. TRACLEER [Suspect]
     Indication: SKIN ULCER
     Dosage: SEE IMAGE
     Route: 048
     Dates: start: 20060801
  4. CLINDAMYCIN (CLINDAMYCIN) [Concomitant]

REACTIONS (2)
  - PERONEAL NERVE INJURY [None]
  - POLYNEUROPATHY [None]
